FAERS Safety Report 7711915-0 (Version None)
Quarter: 2011Q3

REPORT INFORMATION
  Report Type: 
  Country: None (occurrence: None)
  Receive Date: 20110826
  Receipt Date: 20110818
  Transmission Date: 20111222
  Serious: Yes (Disabling)
  Sender: FDA-Public Use
  Company Number: FR-BRISTOL-MYERS SQUIBB COMPANY-15985435

PATIENT
  Age: 59 Year
  Sex: Female

DRUGS (2)
  1. CARBOPLATIN [Suspect]
     Indication: ENDOMETRIAL CANCER
     Route: 042
     Dates: start: 20110101, end: 20110201
  2. TAXOL [Suspect]
     Indication: ENDOMETRIAL CANCER
     Route: 042
     Dates: start: 20110101, end: 20110201

REACTIONS (4)
  - POLYMYOSITIS [None]
  - TOXIC SKIN ERUPTION [None]
  - CELL DEATH [None]
  - PROTEINURIA [None]
